FAERS Safety Report 8236390 (Version 2)
Quarter: 2012Q4

REPORT INFORMATION
  Report Type: 
  Country: US (occurrence: US)
  Receive Date: 20111108
  Receipt Date: 20120911
  Transmission Date: 20130627
  Serious: Yes (Other)
  Sender: FDA-Public Use
  Company Number: US-US-EMD SERONO, INC.-7093432

PATIENT
  Age: 35 None
  Sex: Male

DRUGS (11)
  1. REBIF [Suspect]
     Indication: MULTIPLE SCLEROSIS
     Route: 058
     Dates: start: 20100519
  2. CANNABIS SATIVA SUBSP. INDICA TOP [Concomitant]
     Indication: PAIN
     Dates: start: 20100519
  3. VICODIN [Concomitant]
     Indication: PAIN
  4. ZANAFLEX [Concomitant]
     Indication: MUSCLE SPASMS
  5. NORCO [Concomitant]
     Indication: PAIN
  6. NAPROXEN [Concomitant]
     Indication: PAIN
  7. PRILOSEC [Concomitant]
     Indication: GASTROOESOPHAGEAL REFLUX DISEASE
  8. VITAMIN B [Concomitant]
     Indication: VITAMIN SUPPLEMENTATION
  9. VITAMIN D [Concomitant]
     Indication: VITAMIN SUPPLEMENTATION
  10. ROBAXIN [Concomitant]
     Indication: MUSCLE SPASMS
  11. ROBAXIN [Concomitant]
     Indication: MUSCLE SPASMS

REACTIONS (3)
  - Atypical pneumonia [Recovered/Resolved]
  - Bronchitis [Recovered/Resolved]
  - Injection site erythema [Unknown]
